FAERS Safety Report 9105499 (Version 3)
Quarter: 2013Q4

REPORT INFORMATION
  Report Type: Report from Study
  Country: US (occurrence: US)
  Receive Date: 20130220
  Receipt Date: 20131125
  Transmission Date: 20140711
  Serious: No
  Sender: FDA-Public Use
  Company Number: US-VERTEX PHARMACEUTICALS INC.-2013-002344

PATIENT
  Age: 60 Year
  Sex: Male
  Weight: 68 kg

DRUGS (4)
  1. VX-950 (TELAPREVIR) [Suspect]
     Indication: HEPATITIS C
     Dosage: 750 MG, UNK
     Route: 048
     Dates: start: 20130128, end: 20130422
  2. RIBAVIRIN [Suspect]
     Indication: HEPATITIS C
     Dosage: 600 MG, QD
     Route: 048
     Dates: start: 20130128
  3. RIBAVIRIN [Suspect]
     Dosage: 200 MG, TID
     Dates: start: 201304, end: 20130720
  4. PEGASYS [Suspect]
     Indication: HEPATITIS C
     Dosage: 180 ?G, QW
     Route: 058
     Dates: start: 20130128, end: 20130720

REACTIONS (17)
  - Aphasia [Unknown]
  - Peripheral motor neuropathy [Not Recovered/Not Resolved]
  - Peripheral sensory neuropathy [Not Recovered/Not Resolved]
  - Bipolar disorder [Unknown]
  - Vision blurred [Not Recovered/Not Resolved]
  - Abdominal discomfort [Not Recovered/Not Resolved]
  - Oral discomfort [Not Recovered/Not Resolved]
  - Glossodynia [Not Recovered/Not Resolved]
  - Glossitis [Not Recovered/Not Resolved]
  - Pallor [Not Recovered/Not Resolved]
  - Skin striae [Not Recovered/Not Resolved]
  - Inflammation [Not Recovered/Not Resolved]
  - Pain of skin [Not Recovered/Not Resolved]
  - Dry mouth [Not Recovered/Not Resolved]
  - Rash macular [Not Recovered/Not Resolved]
  - Anaemia [Unknown]
  - Dysgeusia [Not Recovered/Not Resolved]
